FAERS Safety Report 14843004 (Version 1)
Quarter: 2018Q2

REPORT INFORMATION
  Report Type: Spontaneous
  Country: US (occurrence: US)
  Receive Date: 20180418
  Receipt Date: 20180418
  Transmission Date: 20180711
  Serious: Yes (Other)
  Sender: FDA-Public Use
  Company Number: None

PATIENT
  Age: 61 Year
  Sex: Male

DRUGS (8)
  1. LENALIDOMIDE [Concomitant]
     Active Substance: LENALIDOMIDE
  2. REVLIMID [Suspect]
     Active Substance: LENALIDOMIDE
     Indication: PLASMA CELL MYELOMA
     Route: 048
     Dates: start: 201712, end: 20180330
  3. DAPSONE. [Concomitant]
     Active Substance: DAPSONE
  4. ACYCLOVIR. [Concomitant]
     Active Substance: ACYCLOVIR
  5. ATORVASTATIN [Concomitant]
     Active Substance: ATORVASTATIN
  6. ONDANSETRON [Concomitant]
     Active Substance: ONDANSETRON
  7. ASPIRIN. [Concomitant]
     Active Substance: ASPIRIN
  8. K-TAB [Concomitant]
     Active Substance: POTASSIUM CHLORIDE

REACTIONS (3)
  - Erythema [None]
  - Rash [None]
  - Disease progression [None]

NARRATIVE: CASE EVENT DATE: 20180330
